FAERS Safety Report 11393080 (Version 2)
Quarter: 2015Q3

REPORT INFORMATION
  Report Type: Spontaneous
  Country: US (occurrence: US)
  Receive Date: 20150818
  Receipt Date: 20150924
  Transmission Date: 20151125
  Serious: No
  Sender: FDA-Public Use
  Company Number: US-GLAXOSMITHKLINE-US2015GSK117489

PATIENT
  Age: 57 Year
  Sex: Male

DRUGS (1)
  1. VOTRIENT [Suspect]
     Active Substance: PAZOPANIB HYDROCHLORIDE
     Indication: CHOLANGIOCARCINOMA
     Dosage: 800 MG, QD
     Route: 048

REACTIONS (4)
  - Nausea [Unknown]
  - Neoplasm progression [Unknown]
  - Feeling abnormal [Unknown]
  - Fatigue [Unknown]
